FAERS Safety Report 26195038 (Version 2)
Quarter: 2025Q4

REPORT INFORMATION
  Report Type: Spontaneous
  Country: US (occurrence: US)
  Receive Date: 20251224
  Receipt Date: 20251229
  Transmission Date: 20260119
  Serious: Yes (Other)
  Sender: RANBAXY
  Company Number: US-SUN PHARMACEUTICAL INDUSTRIES INC-2025R1-543459

PATIENT
  Age: 75 Year
  Sex: Female

DRUGS (3)
  1. CISPLATIN [Suspect]
     Active Substance: CISPLATIN
     Indication: Metastasis
     Dosage: UNK
     Route: 065
  2. GEMCITABINE [Suspect]
     Active Substance: GEMCITABINE
     Indication: Metastasis
     Dosage: UNK
     Route: 065
  3. OLAPARIB [Suspect]
     Active Substance: OLAPARIB
     Indication: Metastasis
     Dosage: UNK
     Route: 065

REACTIONS (1)
  - Treatment failure [Unknown]
